FAERS Safety Report 6580907-X (Version None)
Quarter: 2010Q1

REPORT INFORMATION
  Report Type: 
  Country: None (occurrence: None)
  Receive Date: 20100215
  Receipt Date: 20100208
  Transmission Date: 20100710
  Serious: Yes (Death, Hospitalization)
  Sender: FDA-Public Use
  Company Number: JP-BAXTER-2009BH005381

PATIENT
  Age: 15 Month
  Sex: Male

DRUGS (2)
  1. ADVATE [Suspect]
     Indication: FACTOR VIII DEFICIENCY
     Route: 042
     Dates: start: 20080616, end: 20090324
  2. ADVATE [Suspect]
     Route: 042
     Dates: start: 20080616, end: 20090324

REACTIONS (1)
  - SUBDURAL HAEMATOMA [None]
